FAERS Safety Report 18778463 (Version 1)
Quarter: 2021Q1

REPORT INFORMATION
  Report Type: Report from Study
  Country: US (occurrence: US)
  Receive Date: 20210123
  Receipt Date: 20210123
  Transmission Date: 20210419
  Serious: Yes (Death, Other)
  Sender: FDA-Public Use
  Company Number: US-ADVANZ PHARMA-202012011420

PATIENT

DRUGS (26)
  1. CLONIDINE. [Suspect]
     Active Substance: CLONIDINE
     Dosage: UNK
     Route: 051
  2. AMLODIPINE [Suspect]
     Active Substance: AMLODIPINE BESYLATE
     Dosage: UNK
     Route: 051
  3. LISPRO (ER) [Suspect]
     Active Substance: INSULIN LISPRO
     Route: 048
  4. ROSUVASTATIN. [Suspect]
     Active Substance: ROSUVASTATIN
     Route: 051
  5. ALLOPURINOL. [Suspect]
     Active Substance: ALLOPURINOL
     Dosage: UNK
     Route: 051
  6. GLARGINE (ER) [Suspect]
     Active Substance: INSULIN GLARGINE
     Dosage: UNK
     Route: 051
  7. METFORMIN [Suspect]
     Active Substance: METFORMIN HYDROCHLORIDE
     Route: 048
  8. SALICYLATE [Suspect]
     Active Substance: SALICYLIC ACID
     Route: 048
  9. ALLOPURINOL. [Suspect]
     Active Substance: ALLOPURINOL
     Route: 048
  10. HYDRALAZINE [Suspect]
     Active Substance: HYDRALAZINE HYDROCHLORIDE
     Route: 048
  11. HYDRALAZINE [Suspect]
     Active Substance: HYDRALAZINE HYDROCHLORIDE
     Route: 051
  12. CLONIDINE. [Suspect]
     Active Substance: CLONIDINE
     Dosage: UNK
     Route: 048
  13. DILTIAZEM. [Suspect]
     Active Substance: DILTIAZEM
     Route: 051
  14. LISINOPRIL. [Suspect]
     Active Substance: LISINOPRIL
     Route: 048
  15. AMLODIPINE [Suspect]
     Active Substance: AMLODIPINE BESYLATE
     Dosage: UNK
     Route: 048
  16. METFORMIN [Suspect]
     Active Substance: METFORMIN HYDROCHLORIDE
     Dosage: UNK
     Route: 051
  17. LISINOPRIL. [Suspect]
     Active Substance: LISINOPRIL
     Route: 051
  18. ROSUVASTATIN. [Suspect]
     Active Substance: ROSUVASTATIN
     Route: 048
  19. DULOXETINE (ER) [Suspect]
     Active Substance: DULOXETINE
     Route: 051
  20. SALICYLATE [Suspect]
     Active Substance: SALICYLIC ACID
     Route: 051
  21. DILTIAZEM. [Suspect]
     Active Substance: DILTIAZEM
     Route: 048
  22. GLARGINE (ER) [Suspect]
     Active Substance: INSULIN GLARGINE
     Route: 048
  23. LISPRO (ER) [Suspect]
     Active Substance: INSULIN LISPRO
     Route: 051
  24. OMEPRAZOLE. [Suspect]
     Active Substance: OMEPRAZOLE
     Route: 051
  25. DULOXETINE (ER) [Suspect]
     Active Substance: DULOXETINE
     Route: 048
  26. OMEPRAZOLE. [Suspect]
     Active Substance: OMEPRAZOLE
     Route: 048

REACTIONS (1)
  - Completed suicide [Fatal]
